FAERS Safety Report 24790750 (Version 1)
Quarter: 2024Q4

REPORT INFORMATION
  Report Type: Spontaneous
  Country: US (occurrence: US)
  Receive Date: 20241230
  Receipt Date: 20241230
  Transmission Date: 20250115
  Serious: No
  Sender: BAUSCH AND LOMB
  Company Number: US-BAUSCH-BL-2024-018868

PATIENT
  Age: 53 Year
  Sex: Male

DRUGS (9)
  1. WELLBUTRIN XL [Suspect]
     Active Substance: BUPROPION HYDROCHLORIDE
     Indication: Asthenia
     Dosage: CONTINUED TO TAPER OFF WELLBUTRIN XL
     Route: 065
  2. WELLBUTRIN XL [Suspect]
     Active Substance: BUPROPION HYDROCHLORIDE
     Indication: Product use in unapproved indication
  3. LUMRYZ [Suspect]
     Active Substance: SODIUM OXYBATE
     Indication: Narcolepsy
     Dosage: EXTENDED-RELEASE ORAL SUSPENSION, ONCE NIGHTLY
     Route: 065
     Dates: start: 202410, end: 2024
  4. LUMRYZ [Suspect]
     Active Substance: SODIUM OXYBATE
     Indication: Cataplexy
     Dosage: EXTENDED-RELEASE ORAL SUSPENSION, ONCE NIGHTLY
     Route: 065
     Dates: start: 20241012, end: 202410
  5. LUMRYZ [Suspect]
     Active Substance: SODIUM OXYBATE
     Dosage: EXTENDED-RELEASE ORAL SUSPENSION
     Route: 065
     Dates: start: 2024, end: 2024
  6. LUMRYZ [Suspect]
     Active Substance: SODIUM OXYBATE
     Dosage: EXTENDED-RELEASE ORAL SUSPENSION, ONCE NIGHTLY
     Route: 065
     Dates: start: 2024, end: 20241121
  7. SUNOSI (SOLRIAMFETOL HYDROCHLORIDE) [Concomitant]
     Indication: Product used for unknown indication
  8. VITAMIN B12 [Concomitant]
     Active Substance: CYANOCOBALAMIN
     Indication: Product used for unknown indication
  9. VITAMIN D3 [Concomitant]
     Active Substance: CHOLECALCIFEROL
     Indication: Product used for unknown indication

REACTIONS (11)
  - Gait inability [Unknown]
  - Fatigue [Unknown]
  - Gait disturbance [Unknown]
  - Diarrhoea [Unknown]
  - Nocturia [Unknown]
  - Insomnia [Unknown]
  - Arthralgia [Unknown]
  - Middle insomnia [Unknown]
  - Depression [Unknown]
  - Vomiting [Unknown]
  - Product use in unapproved indication [Unknown]

NARRATIVE: CASE EVENT DATE: 20240101
